FAERS Safety Report 21834391 (Version 1)
Quarter: 2023Q1

REPORT INFORMATION
  Report Type: Report from Study
  Country: GT (occurrence: GT)
  Receive Date: 20230108
  Receipt Date: 20230108
  Transmission Date: 20230418
  Serious: Yes (Death, Other)
  Sender: FDA-Public Use
  Company Number: GT-002147023-NVSC2022GT283254

PATIENT
  Age: 30 Year
  Sex: Female

DRUGS (1)
  1. KISQALI [Suspect]
     Active Substance: RIBOCICLIB
     Indication: Breast cancer
     Dosage: 600 MG, QD
     Route: 048
     Dates: start: 20221117

REACTIONS (13)
  - Metastatic neoplasm [Fatal]
  - Neutropenia [Unknown]
  - Face oedema [Unknown]
  - Odynophagia [Unknown]
  - Hypoacusis [Unknown]
  - Acne [Recovering/Resolving]
  - Oropharyngeal discomfort [Unknown]
  - Breast mass [Unknown]
  - Mucosal inflammation [Unknown]
  - Cough [Unknown]
  - Nausea [Unknown]
  - Decreased appetite [Unknown]
  - Vomiting [Unknown]

NARRATIVE: CASE EVENT DATE: 20221127
